FAERS Safety Report 7478562-X (Version None)
Quarter: 2011Q2

REPORT INFORMATION
  Report Type: 
  Country: None (occurrence: None)
  Receive Date: 20110513
  Receipt Date: 20110512
  Transmission Date: 20111010
  Serious: Yes (Hospitalization)
  Sender: FDA-Public Use
  Company Number: IT-SANOFI-AVENTIS-2011SA027852

PATIENT
  Age: 87 Year
  Sex: Female

DRUGS (7)
  1. LASIX [Suspect]
     Route: 041
     Dates: start: 20110420, end: 20110428
  2. CORDARONE [Concomitant]
     Route: 048
  3. DEPONIT [Concomitant]
     Route: 062
  4. ALDACTONE [Suspect]
     Route: 048
     Dates: start: 20110420, end: 20110428
  5. LEVOFLOXACIN [Suspect]
     Route: 041
     Dates: start: 20110422, end: 20110428
  6. RAMIPRIL [Suspect]
     Route: 048
     Dates: start: 20110413, end: 20110428
  7. COUMADIN [Concomitant]
     Route: 048
     Dates: start: 20090427, end: 20110427

REACTIONS (1)
  - RENAL FAILURE ACUTE [None]
